FAERS Safety Report 15362652 (Version 1)
Quarter: 2018Q3

REPORT INFORMATION
  Report Type: Spontaneous
  Country: IT (occurrence: IT)
  Receive Date: 20180907
  Receipt Date: 20180907
  Transmission Date: 20181010
  Serious: Yes (Other)
  Sender: FDA-Public Use
  Company Number: PHHY2018IT093024

PATIENT
  Age: 20 Year
  Sex: Female

DRUGS (2)
  1. NIMESULIDE [Concomitant]
     Active Substance: NIMESULIDE
     Indication: UPPER RESPIRATORY TRACT INFLAMMATION
     Dosage: 1 DF, UNK
     Route: 048
  2. AMOXICILLIN. [Suspect]
     Active Substance: AMOXICILLIN
     Indication: PHARYNGOTONSILLITIS
     Dosage: 2 DF, QD
     Route: 048
     Dates: start: 20180724, end: 20180727

REACTIONS (2)
  - Erythema [Recovering/Resolving]
  - Pruritus generalised [Recovering/Resolving]

NARRATIVE: CASE EVENT DATE: 20180727
